FAERS Safety Report 24550363 (Version 1)
Quarter: 2024Q4

REPORT INFORMATION
  Report Type: Report from Study
  Country: KR (occurrence: KR)
  Receive Date: 20241025
  Receipt Date: 20241025
  Transmission Date: 20250115
  Serious: Yes (Other)
  Sender: JOHNSON AND JOHNSON
  Company Number: KR-JNJFOC-20230830465

PATIENT
  Age: 61 Year
  Sex: Female
  Weight: 45 kg

DRUGS (18)
  1. LAZERTINIB [Suspect]
     Active Substance: LAZERTINIB
     Indication: Non-small cell lung cancer
     Dosage: LAST DOSE PRIOR TO EVENT WAS ON 23-JUL-2023
     Route: 048
     Dates: start: 20230320, end: 20230723
  2. TYLENOL [Concomitant]
     Active Substance: ACETAMINOPHEN
     Indication: Pain management
     Dosage: 3 TABLETS DAILY
     Route: 048
     Dates: start: 20230216, end: 20230925
  3. DESOWEN [Concomitant]
     Active Substance: DESONIDE
     Indication: Rash
     Route: 062
  4. DEXAMETHASONE [Concomitant]
     Active Substance: DEXAMETHASONE
     Indication: Neurological symptom
     Dosage: 4 TABLETS
     Route: 048
  5. DEXAMETHASONE [Concomitant]
     Active Substance: DEXAMETHASONE
     Indication: Dysarthria
     Route: 048
     Dates: start: 20230807
  6. GASTER [Concomitant]
     Active Substance: FAMOTIDINE
     Indication: Neurological symptom
     Route: 048
  7. GASTER [Concomitant]
     Active Substance: FAMOTIDINE
     Indication: Prophylaxis
     Route: 048
     Dates: start: 20230807
  8. ULTRACET [Concomitant]
     Active Substance: ACETAMINOPHEN\TRAMADOL HYDROCHLORIDE
     Indication: Pain management
     Dosage: 325MG/37.5MG 2 TABLETS
     Route: 048
     Dates: start: 20230807
  9. ELIDEL [Concomitant]
     Active Substance: PIMECROLIMUS
     Indication: Rash
     Route: 062
  10. ELIDEL [Concomitant]
     Active Substance: PIMECROLIMUS
     Dosage: 1% CREAM 2 APPLICATIONS TRANSDERMAL DAILY
     Route: 062
     Dates: start: 20230808, end: 20230925
  11. CYMBALTA [Concomitant]
     Active Substance: DULOXETINE HYDROCHLORIDE
     Dates: start: 20230504
  12. XYZAL [Concomitant]
     Active Substance: LEVOCETIRIZINE DIHYDROCHLORIDE
     Indication: Rash
  13. DESOWEN [Concomitant]
     Active Substance: DESONIDE
     Indication: Rash
  14. TEICOPLANIN [Concomitant]
     Active Substance: TEICOPLANIN
     Indication: Rash
  15. TEICOPLANIN [Concomitant]
     Active Substance: TEICOPLANIN
     Indication: Rash
  16. CEFTAZIDIME [Concomitant]
     Active Substance: CEFTAZIDIME
     Dates: start: 20230912
  17. CEFEPIME [Concomitant]
     Active Substance: CEFEPIME HYDROCHLORIDE
  18. DESOWEN [Concomitant]
     Active Substance: DESONIDE
     Indication: Rash
     Route: 062
     Dates: start: 20230724, end: 20230925

REACTIONS (2)
  - Platelet count decreased [Not Recovered/Not Resolved]
  - Platelet count decreased [Not Recovered/Not Resolved]

NARRATIVE: CASE EVENT DATE: 20230724
